FAERS Safety Report 4678636-2 (Version None)
Quarter: 2005Q2

REPORT INFORMATION
  Report Type: 
  Country: None (occurrence: None)
  Receive Date: 20050527
  Receipt Date: 20050517
  Transmission Date: 20051028
  Serious: Yes (Other)
  Sender: FDA-Public Use
  Company Number: 2005064662

PATIENT
  Sex: Male

DRUGS (2)
  1. ZITHROMAX [Suspect]
     Indication: INFECTIOUS MONONUCLEOSIS
     Dosage: ORAL
     Route: 048
  2. AMOXICILLIN [Suspect]
     Indication: INFECTIOUS MONONUCLEOSIS
     Dosage: ORAL
     Route: 048

REACTIONS (1)
  - RASH GENERALISED [None]
